FAERS Safety Report 6129561-1 (Version None)
Quarter: 2009Q1

REPORT INFORMATION
  Report Type: 
  Country: None (occurrence: None)
  Receive Date: 20090324
  Receipt Date: 20090311
  Transmission Date: 20090719
  Serious: Yes (Hospitalization)
  Sender: FDA-Public Use
  Company Number: CA-AMGEN-US337911

PATIENT
  Sex: Female
  Weight: 62 kg

DRUGS (5)
  1. ETANERCEPT [Suspect]
     Indication: PSORIASIS
     Route: 058
     Dates: start: 20071004
  2. CILEST [Concomitant]
     Route: 048
  3. CELEXA [Concomitant]
     Route: 048
     Dates: start: 20070701
  4. CETIRIZINE HYDROCHLORIDE [Concomitant]
     Route: 048
     Dates: start: 20071120
  5. VENTOLIN [Concomitant]
     Route: 055

REACTIONS (1)
  - INFLAMMATORY BOWEL DISEASE [None]
